FAERS Safety Report 10167250 (Version 2)
Quarter: 2014Q2

REPORT INFORMATION
  Report Type: Spontaneous
  Country: US (occurrence: US)
  Receive Date: 20140512
  Receipt Date: 20140602
  Transmission Date: 20141212
  Serious: No
  Sender: FDA-Public Use
  Company Number: US-PFIZER INC-2014128007

PATIENT
  Age: 66 Year
  Sex: Male
  Weight: 111.11 kg

DRUGS (1)
  1. GLIPIZIDE [Suspect]
     Indication: TYPE 2 DIABETES MELLITUS
     Dosage: 10 MG, 2X/DAY

REACTIONS (2)
  - Drug ineffective [Unknown]
  - Product substitution issue [Unknown]
